FAERS Safety Report 13931938 (Version 1)
Quarter: 2017Q3

REPORT INFORMATION
  Report Type: Spontaneous
  Country: CA (occurrence: CA)
  Receive Date: 20170904
  Receipt Date: 20170904
  Transmission Date: 20171127
  Serious: Yes (Disabling)
  Sender: FDA-Public Use
  Company Number: CA-TEVA-801681ACC

PATIENT
  Age: 34 Year
  Sex: Female
  Weight: 59.02 kg

DRUGS (1)
  1. LEVOFLOXACIN. [Suspect]
     Active Substance: LEVOFLOXACIN
     Indication: MASTOIDITIS
     Dosage: 750 MILLIGRAM DAILY;
     Route: 048

REACTIONS (5)
  - Fatigue [Unknown]
  - Muscle tightness [Unknown]
  - Myalgia [Unknown]
  - Arthralgia [Unknown]
  - Asthenia [Unknown]
